FAERS Safety Report 4373753-9 (Version None)
Quarter: 2004Q2

REPORT INFORMATION
  Report Type: 
  Country: None (occurrence: None)
  Receive Date: 20040603
  Receipt Date: 20040513
  Transmission Date: 20050107
  Serious: Yes (Other)
  Sender: FDA-Public Use
  Company Number: CA_040506951

PATIENT
  Age: 78 Year
  Sex: Female

DRUGS (11)
  1. PERMAX [Suspect]
     Dosage: 0.5 MG/3 DAY
  2. APO-HYDRO(HYDROCHLOROTHIAZIDE) [Concomitant]
  3. APO-DOXEPIN(DOXEPIN HYDROCHLORIDE) [Concomitant]
  4. APO-GLYBURIDE(GLIBENCLAMIDE) [Concomitant]
  5. ARTHROTEC [Concomitant]
  6. ACETYLSALICYLIC ACID SRT [Concomitant]
  7. COZAAR [Concomitant]
  8. NORVASC [Concomitant]
  9. METFORMIN HCL [Concomitant]
  10. EXTRA STRENGTH TYLENOL [Concomitant]
  11. TYLENOL W/ CODEINE NO. 3 [Concomitant]

REACTIONS (3)
  - AORTIC STENOSIS [None]
  - CONDITION AGGRAVATED [None]
  - DYSPNOEA [None]
